FAERS Safety Report 8439106-9 (Version None)
Quarter: 2012Q2

REPORT INFORMATION
  Report Type: 
  Country: None (occurrence: None)
  Receive Date: 20120615
  Receipt Date: 20120611
  Transmission Date: 20120825
  Serious: Yes (Death, Hospitalization, Other)
  Sender: FDA-Public Use
  Company Number: US-B.I. PHARMACEUTICALS,INC./RIDGEFIELD-2012-BP-10773BP

PATIENT
  Sex: Male
  Weight: 92.99 kg

DRUGS (9)
  1. HYTRIN [Concomitant]
     Route: 048
  2. ENBREL [Concomitant]
  3. TRIBENZOR (AMLODIPINE/HYDROCHLOROTHIAZIDE/OLMESARTAN) [Concomitant]
     Route: 048
     Dates: start: 20110921
  4. JANUMET (METOFORMIN-SITAGLIPTIN) [Concomitant]
     Route: 048
     Dates: start: 20100515
  5. PRADAXA [Suspect]
     Indication: ATRIAL FIBRILLATION
     Dosage: 300 MG
     Route: 048
     Dates: start: 20110117, end: 20120419
  6. DIGOXIN [Concomitant]
     Dates: start: 20100519
  7. SIMCOR (NIACIN-SIMVASTATIN) [Concomitant]
     Route: 048
  8. IRON (FERROUS SULFATE) [Concomitant]
     Route: 048
  9. DIGOXIN [Concomitant]
     Route: 048
     Dates: start: 20100515

REACTIONS (3)
  - RENAL FAILURE ACUTE [None]
  - MALLORY-WEISS SYNDROME [None]
  - CELLULITIS [None]
